FAERS Safety Report 5359053-9 (Version None)
Quarter: 2007Q2

REPORT INFORMATION
  Report Type: 
  Country: None (occurrence: None)
  Receive Date: 20070615
  Receipt Date: 20070604
  Transmission Date: 20071010
  Serious: Yes (Hospitalization, Disabling, Other)
  Sender: FDA-Public Use
  Company Number: US-ELI_LILLY_AND_COMPANY-US200706000754

PATIENT
  Age: 85 Year
  Sex: Female

DRUGS (2)
  1. FORTEO [Suspect]
     Indication: OSTEOPOROSIS
     Dates: start: 20060101, end: 20061101
  2. FORTEO [Suspect]

REACTIONS (5)
  - DEMENTIA [None]
  - DISABILITY [None]
  - FALL [None]
  - HIP FRACTURE [None]
  - IMPAIRED HEALING [None]
